FAERS Safety Report 9910206 (Version 1)
Quarter: 2014Q1

REPORT INFORMATION
  Report Type: Spontaneous
  Country: US (occurrence: US)
  Receive Date: 20140219
  Receipt Date: 20140219
  Transmission Date: 20141002
  Serious: No
  Sender: FDA-Public Use
  Company Number: US-BAYER-2014-025791

PATIENT
  Age: 87 Year
  Sex: Female
  Weight: 70 kg

DRUGS (2)
  1. ALEVE CAPLET [Suspect]
     Indication: HEADACHE
     Dosage: 1 DF, PRN
     Route: 048
     Dates: start: 201402, end: 201402
  2. ALEVE CAPLET [Suspect]
     Indication: NECK PAIN

REACTIONS (2)
  - Pain [Recovered/Resolved]
  - Abdominal pain upper [Recovered/Resolved]
